FAERS Safety Report 9424249 (Version 1)
Quarter: 2013Q3

REPORT INFORMATION
  Report Type: Spontaneous
  Country: US (occurrence: None)
  Receive Date: 20130726
  Receipt Date: 20130726
  Transmission Date: 20140515
  Serious: No
  Sender: FDA-Public Use
  Company Number: None

PATIENT
  Age: 67 Year
  Sex: Female
  Weight: 58.1 kg

DRUGS (1)
  1. SULFAMETHOXAZOLE / TRIMETHOPRIM [Suspect]
     Dates: start: 20110524, end: 20110602

REACTIONS (10)
  - Drug-induced liver injury [None]
  - Jaundice [None]
  - Transaminases increased [None]
  - Blood alkaline phosphatase increased [None]
  - Rash [None]
  - Fatigue [None]
  - Chromaturia [None]
  - Faeces pale [None]
  - Blood bilirubin increased [None]
  - Haemangioma [None]
